FAERS Safety Report 15605788 (Version 2)
Quarter: 2018Q4

REPORT INFORMATION
  Report Type: Report from Study
  Country: NL (occurrence: NL)
  Receive Date: 20181112
  Receipt Date: 20181127
  Transmission Date: 20190205
  Serious: Yes (Death, Other)
  Sender: FDA-Public Use
  Company Number: NL-TOLMAR, INC.-2018NL011040

PATIENT

DRUGS (18)
  1. BISOPROLOL [Concomitant]
     Active Substance: BISOPROLOL
     Route: 065
  2. CIPROFLOXACIN. [Concomitant]
     Active Substance: CIPROFLOXACIN
  3. PANTOPRAZOLE [Concomitant]
     Active Substance: PANTOPRAZOLE
  4. ELIGARD [Suspect]
     Active Substance: LEUPROLIDE ACETATE
     Dosage: 22.5 MG, Q3MONTHS
     Route: 058
     Dates: start: 20180702
  5. RAMIPRIL. [Concomitant]
     Active Substance: RAMIPRIL
  6. ELIGARD [Suspect]
     Active Substance: LEUPROLIDE ACETATE
     Indication: PROSTATE CANCER
     Dosage: 22.5 MG, Q3MONTHS
     Route: 058
     Dates: start: 20150109
  7. THYRAX                             /00068001/ [Concomitant]
     Active Substance: LEVOTHYROXINE
  8. PRAVASTATIN. [Concomitant]
     Active Substance: PRAVASTATIN
  9. XARELTO [Concomitant]
     Active Substance: RIVAROXABAN
  10. SPIRONOLACTONE. [Concomitant]
     Active Substance: SPIRONOLACTONE
  11. EPREX [Concomitant]
     Active Substance: ERYTHROPOIETIN
  12. FUROSEMIDE. [Concomitant]
     Active Substance: FUROSEMIDE
  13. NITROGLYCERIN. [Concomitant]
     Active Substance: NITROGLYCERIN
  14. PREDNISOLONE. [Concomitant]
     Active Substance: PREDNISOLONE
  15. DERMOVATE [Concomitant]
     Active Substance: CLOBETASOL
  16. COLECALCIFEROL [Concomitant]
     Active Substance: CHOLECALCIFEROL
  17. ELIGARD [Suspect]
     Active Substance: LEUPROLIDE ACETATE
     Dosage: 22.5 MG, Q3MONTHS
     Route: 058
     Dates: start: 20181003
  18. RIVAROXABAN [Concomitant]
     Active Substance: RIVAROXABAN

REACTIONS (4)
  - Death [Fatal]
  - Cardiac disorder [Unknown]
  - Haemoglobin decreased [Unknown]
  - Transient ischaemic attack [Unknown]
